FAERS Safety Report 17292970 (Version 1)
Quarter: 2020Q1

REPORT INFORMATION
  Report Type: Spontaneous
  Country: CN (occurrence: CN)
  Receive Date: 20200121
  Receipt Date: 20200121
  Transmission Date: 20200409
  Serious: Yes (Death, Hospitalization, Other)
  Sender: FDA-Public Use
  Company Number: NVSC2020CN011701

PATIENT
  Age: 70 Year
  Sex: Male

DRUGS (1)
  1. PREDNISONE. [Suspect]
     Active Substance: PREDNISONE
     Indication: NEPHROTIC SYNDROME
     Dosage: UNK
     Route: 048

REACTIONS (8)
  - Pneumonia klebsiella [Fatal]
  - Pyrexia [Fatal]
  - Haemoptysis [Fatal]
  - Abdominal pain [Fatal]
  - Cellulitis [Recovering/Resolving]
  - Cough [Fatal]
  - Strongyloidiasis [Fatal]
  - Product use in unapproved indication [Unknown]
